FAERS Safety Report 12212081 (Version 1)
Quarter: 2016Q1

REPORT INFORMATION
  Report Type: Spontaneous
  Country: CA (occurrence: CA)
  Receive Date: 20160325
  Receipt Date: 20160325
  Transmission Date: 20160526
  Serious: Yes (Death)
  Sender: FDA-Public Use
  Company Number: CA-ELI_LILLY_AND_COMPANY-CA201603009147

PATIENT
  Age: 65 Year
  Sex: Female

DRUGS (12)
  1. OLANZAPINE. [Interacting]
     Active Substance: OLANZAPINE
     Indication: SCHIZOAFFECTIVE DISORDER
     Dosage: 2.5 MG, EACH EVENING
     Route: 065
  2. CITALOPRAM [Concomitant]
     Active Substance: CITALOPRAM HYDROBROMIDE
     Indication: DEPRESSION
     Dosage: 20 MG, UNK
  3. PRAVASTATIN [Concomitant]
     Active Substance: PRAVASTATIN\PRAVASTATIN SODIUM
     Indication: DYSLIPIDAEMIA
     Dosage: 20 MG, UNK
  4. CLOZAPIN [Interacting]
     Active Substance: CLOZAPINE
     Indication: SCHIZOAFFECTIVE DISORDER
     Dosage: 100 MG, EACH MORNING
     Route: 065
  5. CLOZAPIN [Interacting]
     Active Substance: CLOZAPINE
     Dosage: 400 MG, EACH EVENING
     Route: 065
  6. METFORMIN [Concomitant]
     Active Substance: METFORMIN HYDROCHLORIDE
     Indication: DIABETES MELLITUS
     Dosage: 800 MG, UNK
  7. CLOPIDOGREL [Concomitant]
     Active Substance: CLOPIDOGREL BISULFATE
     Indication: TRANSIENT ISCHAEMIC ATTACK
     Dosage: 75 MG, QD
  8. ZYPREXA ZYDIS [Suspect]
     Active Substance: OLANZAPINE
     Indication: SCHIZOAFFECTIVE DISORDER
     Dosage: UNK
     Route: 065
  9. CLONIDINE. [Concomitant]
     Active Substance: CLONIDINE
     Indication: TARDIVE DYSKINESIA
     Dosage: 0.1 MG, EACH EVENING
  10. METOPROLOL. [Concomitant]
     Active Substance: METOPROLOL
     Indication: ARTERIOSCLEROSIS
     Dosage: 12.5 MG, BID
  11. OXAZEPAM. [Concomitant]
     Active Substance: OXAZEPAM
     Indication: HYPNOTHERAPY
     Dosage: 30 MG, EACH EVENING
  12. RAMIPRIL. [Concomitant]
     Active Substance: RAMIPRIL
     Indication: DIABETES MELLITUS
     Dosage: 2.5 MG, EACH MORNING

REACTIONS (3)
  - Dehydration [Fatal]
  - Neuroleptic malignant syndrome [Fatal]
  - Potentiating drug interaction [Fatal]

NARRATIVE: CASE EVENT DATE: 20130716
